FAERS Safety Report 4769120-6 (Version None)
Quarter: 2005Q3

REPORT INFORMATION
  Report Type: 
  Country: None (occurrence: None)
  Receive Date: 20050912
  Receipt Date: 20050520
  Transmission Date: 20060218
  Serious: Yes (Hospitalization)
  Sender: FDA-Public Use
  Company Number: 2005-01113

PATIENT
  Age: 73 Year
  Sex: Male
  Weight: 74.2 kg

DRUGS (2)
  1. VELCADE [Suspect]
     Indication: MULTIPLE MYELOMA
     Dosage: 1.80 MG, 2/WEEK, INTRAVENOUS
     Route: 042
     Dates: start: 20050426, end: 20050429
  2. SCIO-469 [Suspect]
     Indication: MULTIPLE MYELOMA
     Dosage: 60.00 MG,TID, ORAL
     Route: 048
     Dates: start: 20050321, end: 20050501

REACTIONS (5)
  - BLOOD CULTURE POSITIVE [None]
  - BONE PAIN [None]
  - EPISTAXIS [None]
  - PLEURAL EFFUSION [None]
  - PNEUMONIA [None]
